FAERS Safety Report 8781503 (Version 1)
Quarter: 2012Q4

REPORT INFORMATION
  Report Type: 
  Country: US (occurrence: US)
  Receive Date: 20120913
  Receipt Date: 20120913
  Transmission Date: 20130627
  Serious: No
  Sender: FDA-Public Use
  Company Number: US-VERTEX PHARMACEUTICAL INC.-AE-2012-007919

PATIENT
  Sex: Male
  Weight: 94.55 kg

DRUGS (10)
  1. INCIVEK [Suspect]
     Indication: HEPATITIS C
     Route: 048
     Dates: start: 20120518
  2. RIBAVIRIN [Concomitant]
     Indication: HEPATITIS C
     Route: 048
     Dates: start: 20120518
  3. PEGASYS [Concomitant]
     Indication: HEPATITIS C
     Route: 058
     Dates: start: 20120518
  4. PERCOCET [Concomitant]
     Indication: PAIN
  5. NARCO [Concomitant]
     Indication: PAIN
     Route: 048
  6. ASPIRIN [Concomitant]
     Indication: PAIN
     Route: 048
  7. CITALOPRAM [Concomitant]
     Route: 048
  8. METOPROLOL [Concomitant]
     Indication: HYPERTENSION
     Route: 048
  9. LYRICA [Concomitant]
     Indication: NEURALGIA
     Route: 048
  10. DEXILANT [Concomitant]
     Indication: GASTROOESOPHAGEAL REFLUX DISEASE
     Route: 048

REACTIONS (3)
  - Oral mucosal blistering [Not Recovered/Not Resolved]
  - Tongue blistering [Not Recovered/Not Resolved]
  - Blister [Not Recovered/Not Resolved]
